FAERS Safety Report 5927083-1 (Version None)
Quarter: 2008Q4

REPORT INFORMATION
  Report Type: 
  Country: None (occurrence: None)
  Receive Date: 20081022
  Receipt Date: 20081013
  Transmission Date: 20090506
  Serious: No
  Sender: FDA-Public Use
  Company Number: US-B.I. PHARMACEUTICALS,INC./RIDGEFIELD-2007-BP-02342BP

PATIENT
  Sex: Female
  Weight: 64 kg

DRUGS (32)
  1. MIRAPEX [Suspect]
     Indication: PARKINSON'S DISEASE
     Dates: start: 20020508, end: 20050501
  2. COMTAN [Concomitant]
     Indication: PARKINSON'S DISEASE
     Dosage: 600MG
  3. DEPAKOTE ER [Concomitant]
     Indication: DEPRESSION
  4. SINEMET [Concomitant]
     Indication: PARKINSON'S DISEASE
  5. CELEBREX [Concomitant]
     Indication: ARTHRITIS
     Dosage: 200MG
  6. PREMPRO [Concomitant]
     Indication: OESTROGEN REPLACEMENT THERAPY
  7. EVISTA [Concomitant]
  8. REQUIP [Concomitant]
  9. ELDEPRYL [Concomitant]
  10. SYMMETREL [Concomitant]
     Indication: PARKINSON'S DISEASE
     Dosage: 300MG
  11. CLONOPIN [Concomitant]
     Indication: PARKINSON'S DISEASE
  12. FOS0MAX TD [Concomitant]
     Indication: OSTEOPOROSIS
  13. XANAX [Concomitant]
     Indication: ANXIETY
  14. DARVOCET [Concomitant]
     Indication: ARTHRITIS
  15. HYDROCHLOR0THYAZIDE [Concomitant]
     Indication: ARTHRITIS
  16. ALPRAZOLAM [Concomitant]
  17. GABAPENTIN [Concomitant]
  18. ZOCOR [Concomitant]
  19. PERCOCET [Concomitant]
  20. PRILOSEC [Concomitant]
     Indication: GASTROOESOPHAGEAL REFLUX DISEASE
  21. ZOLOFT [Concomitant]
     Indication: DEPRESSION
  22. VICODEN [Concomitant]
  23. MOTRIN [Concomitant]
  24. CALCIUM [Concomitant]
  25. ESTROGENIC SUBSTANCE [Concomitant]
  26. FLEXERIL [Concomitant]
     Indication: BACK PAIN
  27. FLEXERIL [Concomitant]
     Indication: MUSCLE SPASMS
  28. HYDROCODONE BITARTRATE [Concomitant]
     Indication: ARTHRITIS
  29. LORTAB [Concomitant]
     Indication: ARTHRITIS
  30. PREDNISONE [Concomitant]
     Indication: EYE LASER SURGERY
  31. ANUSOL [Concomitant]
     Indication: HAEMORRHOIDS
  32. TOPICORT [Concomitant]
     Indication: DRY SKIN

REACTIONS (8)
  - AFFECTIVE DISORDER [None]
  - ANXIETY [None]
  - EMOTIONAL DISTRESS [None]
  - FEAR [None]
  - IMPULSE-CONTROL DISORDER [None]
  - OBSESSIVE-COMPULSIVE DISORDER [None]
  - PAIN [None]
  - PATHOLOGICAL GAMBLING [None]
